FAERS Safety Report 5900243-1 (Version None)
Quarter: 2008Q3

REPORT INFORMATION
  Report Type: 
  Country: None (occurrence: None)
  Receive Date: 20080926
  Receipt Date: 20080922
  Transmission Date: 20090109
  Serious: Yes (Hospitalization)
  Sender: FDA-Public Use
  Company Number: US-BRISTOL-MYERS SQUIBB COMPANY-14343396

PATIENT
  Age: 61 Year
  Sex: Male
  Weight: 73 kg

DRUGS (3)
  1. CISPLATIN [Suspect]
     Indication: HEAD AND NECK CANCER
     Dosage: 100MG/2M IV DAYS 1 AND 22
     Route: 042
     Dates: start: 20080806, end: 20080806
  2. RADIATION THERAPY [Suspect]
     Indication: HEAD AND NECK CANCER
     Dosage: 6000 DF = 6000 CGY. DATE OF LAST TREATMENT 15SEP08.NUMBER OF FRACTIONS 30. NO. OF ELASPSED DAYS 41.
     Dates: start: 20080908, end: 20080908
  3. CETUXIMAB [Suspect]
     Indication: HEAD AND NECK CANCER
     Dates: start: 20080905, end: 20080905

REACTIONS (4)
  - BLOOD CREATININE INCREASED [None]
  - CONFUSIONAL STATE [None]
  - STOMATITIS [None]
  - WEIGHT DECREASED [None]
